FAERS Safety Report 9098684 (Version 1)
Quarter: 2013Q1

REPORT INFORMATION
  Report Type: Spontaneous
  Country: US (occurrence: US)
  Receive Date: 20130213
  Receipt Date: 20130213
  Transmission Date: 20140127
  Serious: No
  Sender: FDA-Public Use
  Company Number: US-ALLERGAN-1217419US

PATIENT
  Age: 40 Year
  Sex: Female

DRUGS (1)
  1. LASTACAFT [Suspect]
     Indication: PRODUCT USED FOR UNKNOWN INDICATION
     Dosage: UNK
     Route: 047

REACTIONS (3)
  - Ocular hyperaemia [Unknown]
  - Hypersensitivity [Unknown]
  - Eye swelling [Unknown]
